FAERS Safety Report 8293387-3 (Version None)
Quarter: 2012Q2

REPORT INFORMATION
  Report Type: 
  Country: None (occurrence: None)
  Receive Date: 20120417
  Receipt Date: 20110825
  Transmission Date: 20120825
  Serious: No
  Sender: FDA-Public Use
  Company Number: US-ASTRAZENECA-2010SE13889

PATIENT
  Age: 33 Year
  Sex: Male

DRUGS (1)
  1. NEXIUM [Suspect]
     Route: 048

REACTIONS (8)
  - FLATULENCE [None]
  - WRONG DRUG ADMINISTERED [None]
  - ERUCTATION [None]
  - MALAISE [None]
  - DRUG INEFFECTIVE [None]
  - PAIN [None]
  - INTENTIONAL DRUG MISUSE [None]
  - NASOPHARYNGITIS [None]
